FAERS Safety Report 9012856 (Version 2)
Quarter: 2014Q1

REPORT INFORMATION
  Report Type: Spontaneous
  Country: US (occurrence: US)
  Receive Date: 20130114
  Receipt Date: 20140306
  Transmission Date: 20141002
  Serious: Yes (Death, Other)
  Sender: FDA-Public Use
  Company Number: US-009507513-1301USA003555

PATIENT
  Age: 44 Year
  Sex: Female

DRUGS (15)
  1. SINGULAIR [Suspect]
     Dosage: 10 MG, QD
     Route: 048
  2. DIAZEPAM [Suspect]
     Indication: NEURALGIA
     Dosage: 10 MG, BID
     Route: 048
  3. CITALOPRAM HYDROBROMIDE [Suspect]
     Indication: MUSCLE RELAXANT THERAPY
     Dosage: 20 MG, UNK
  4. GABAPENTIN [Suspect]
     Indication: FATIGUE
     Dosage: 300 MG, QID
     Route: 048
  5. BACLOFEN [Suspect]
     Indication: DYSPEPSIA
     Route: 037
  6. GILENYA [Suspect]
     Indication: PAIN
     Dosage: 0.5 MG, QD
     Route: 048
  7. ZANAFLEX [Suspect]
     Indication: DEPRESSION
  8. TYSABRI [Suspect]
     Indication: SECONDARY PROGRESSIVE MULTIPLE SCLEROSIS
  9. AMPHETAMINE (+) DEXTROAMPHETAMINE [Suspect]
     Indication: DEEP VEIN THROMBOSIS
     Dosage: 10 MG, BID
  10. ACETAMINOPHEN (+) HYDROCODONE BITARTRATE [Suspect]
     Dosage: 10/500 MG
  11. LOVENOX [Concomitant]
     Dosage: 30 MG, BID
     Route: 058
  12. PREVACID [Concomitant]
     Dosage: 30 MG, QD (EVERY MORNING)
     Route: 048
  13. ADDERALL TABLETS [Concomitant]
     Dosage: 10 MG, BID (ONCE IN MORNING AND ONCE IN THE EVENING)
     Route: 048
  14. CYANOCOBALAMIN [Concomitant]
     Dosage: 1000 MICROGRAM, Q4WK
     Route: 030
  15. NEURONTIN [Concomitant]
     Dosage: 300 MG, TID
     Route: 048

REACTIONS (7)
  - Multiple sclerosis [Fatal]
  - Pneumonia [Fatal]
  - Fall [Fatal]
  - Cachexia [Fatal]
  - Blood pressure decreased [Fatal]
  - Asthenia [Fatal]
  - Drug ineffective [Fatal]
